FAERS Safety Report 18410776 (Version 1)
Quarter: 2020Q4

REPORT INFORMATION
  Report Type: Spontaneous
  Country: US (occurrence: US)
  Receive Date: 20201021
  Receipt Date: 20201021
  Transmission Date: 20210114
  Serious: Yes (Life-Threatening, Hospitalization, Disabling)
  Sender: FDA-Public Use
  Company Number: None

PATIENT
  Age: 72 Year
  Sex: Female
  Weight: 63 kg

DRUGS (13)
  1. METOPROLOL TARTRATE. [Concomitant]
     Active Substance: METOPROLOL TARTRATE
  2. GLIMEPIRIDE. [Concomitant]
     Active Substance: GLIMEPIRIDE
  3. OPDIVO [Suspect]
     Active Substance: NIVOLUMAB
     Indication: PROPHYLAXIS
     Dosage: ?          OTHER STRENGTH:UNKNOWN;QUANTITY:3 INJECTION(S);?
     Route: 042
     Dates: start: 20200814, end: 20200916
  4. FARXIGA [Concomitant]
     Active Substance: DAPAGLIFLOZIN PROPANEDIOL
  5. WIXELA INHUB [Concomitant]
     Active Substance: FLUTICASONE PROPIONATE\SALMETEROL XINAFOATE
  6. FLUTICASONE PROPIONATE. [Concomitant]
     Active Substance: FLUTICASONE PROPIONATE
  7. PREGABALIN. [Concomitant]
     Active Substance: PREGABALIN
  8. PANTOPRAZOLE SODIUM. [Concomitant]
     Active Substance: PANTOPRAZOLE SODIUM
  9. AMIODARONE [Concomitant]
     Active Substance: AMIODARONE
  10. ELEQUIS [Concomitant]
  11. MEMANTINE. [Concomitant]
     Active Substance: MEMANTINE
  12. MONTELUKAST SODIUM. [Concomitant]
     Active Substance: MONTELUKAST SODIUM
  13. LOSARTAN POTASSIUM. [Concomitant]
     Active Substance: LOSARTAN POTASSIUM

REACTIONS (11)
  - Gait inability [None]
  - Confusional state [None]
  - Vertigo [None]
  - Dehydration [None]
  - Fatigue [None]
  - Dizziness [None]
  - Headache [None]
  - Intracranial mass [None]
  - Decreased appetite [None]
  - Fall [None]
  - Head injury [None]

NARRATIVE: CASE EVENT DATE: 20200921
